FAERS Safety Report 12632607 (Version 2)
Quarter: 2016Q3

REPORT INFORMATION
  Report Type: Spontaneous
  Country: US (occurrence: US)
  Receive Date: 20160808
  Receipt Date: 20160808
  Transmission Date: 20161109
  Serious: No
  Sender: FDA-Public Use
  Company Number: US-BEH-2015056213

PATIENT
  Sex: Female
  Weight: 65 kg

DRUGS (40)
  1. DIPHENHYDRAMINE. [Concomitant]
     Active Substance: DIPHENHYDRAMINE
  2. LIPITOR [Concomitant]
     Active Substance: ATORVASTATIN CALCIUM
  3. HYZAAR [Concomitant]
     Active Substance: HYDROCHLOROTHIAZIDE\LOSARTAN POTASSIUM
  4. TEMOVATE [Concomitant]
     Active Substance: CLOBETASOL PROPIONATE
  5. LIDODERM [Concomitant]
     Active Substance: LIDOCAINE
  6. EPIPEN [Concomitant]
     Active Substance: EPINEPHRINE
  7. PLAQUENIL [Concomitant]
     Active Substance: HYDROXYCHLOROQUINE SULFATE
  8. CALCIUM + VITAMIN D [Concomitant]
     Active Substance: CALCIUM\VITAMIN D
  9. FLEXERIL [Concomitant]
     Active Substance: CYCLOBENZAPRINE HYDROCHLORIDE
  10. NOXAFIL [Concomitant]
     Active Substance: POSACONAZOLE
  11. MELATONIN [Concomitant]
     Active Substance: MELATONIN
  12. LIDOCAINE/PRILOCAINE [Concomitant]
     Active Substance: LIDOCAINE\PRILOCAINE
  13. TYLENOL-CODEINE NO.3 [Concomitant]
  14. CENTRUM COMPLETE MULTIVITAMIN [Concomitant]
  15. CLONIDINE. [Concomitant]
     Active Substance: CLONIDINE
  16. SENNA [Concomitant]
     Active Substance: SENNA LEAF\SENNOSIDES\SENNOSIDES A AND B
  17. L-LYSINE [Concomitant]
     Active Substance: LYSINE
  18. HIZENTRA [Suspect]
     Active Substance: HUMAN IMMUNOGLOBULIN G
     Route: 058
  19. LIDOCAINE. [Concomitant]
     Active Substance: LIDOCAINE
  20. INVANZ [Concomitant]
     Active Substance: ERTAPENEM SODIUM
  21. METOPROLOL SUCCINATE. [Concomitant]
     Active Substance: METOPROLOL SUCCINATE
  22. FLONASE [Concomitant]
     Active Substance: FLUTICASONE PROPIONATE
  23. SALINE NASAL SPRAY [Concomitant]
     Active Substance: SODIUM CHLORIDE
  24. GABAPENTIN. [Concomitant]
     Active Substance: GABAPENTIN
  25. LEVOXYL [Concomitant]
     Active Substance: LEVOTHYROXINE SODIUM
  26. SYMBICORT [Concomitant]
     Active Substance: BUDESONIDE\FORMOTEROL FUMARATE DIHYDRATE
  27. BUPROPION HYDROCHLORIDE XL [Concomitant]
     Active Substance: BUPROPION HYDROCHLORIDE
  28. MIRAPINE [Concomitant]
  29. HIZENTRA [Suspect]
     Active Substance: HUMAN IMMUNOGLOBULIN G
     Indication: IMMUNODEFICIENCY COMMON VARIABLE
     Route: 058
  30. ONDANSETRON [Concomitant]
     Active Substance: ONDANSETRON
  31. ALBUTEROL. [Concomitant]
     Active Substance: ALBUTEROL
  32. SALEX [Concomitant]
     Active Substance: SALICYLIC ACID
  33. LORATADINE. [Concomitant]
     Active Substance: LORATADINE
  34. ALBUTEROL SULF [Concomitant]
  35. NEUPOGEN [Concomitant]
     Active Substance: FILGRASTIM
  36. SINGULAIR [Concomitant]
     Active Substance: MONTELUKAST SODIUM
  37. BUPROPION. [Concomitant]
     Active Substance: BUPROPION
  38. HIZENTRA [Suspect]
     Active Substance: HUMAN IMMUNOGLOBULIN G
     Route: 058
  39. NASONEX [Concomitant]
     Active Substance: MOMETASONE FUROATE
  40. OMEPRAZOLE. [Concomitant]
     Active Substance: OMEPRAZOLE

REACTIONS (2)
  - Acute sinusitis [Unknown]
  - Upper respiratory tract infection [Unknown]
